FAERS Safety Report 8611975 (Version 8)
Quarter: 2014Q1

REPORT INFORMATION
  Report Type: Report from Study
  Country: JP (occurrence: JP)
  Receive Date: 20120613
  Receipt Date: 20140311
  Transmission Date: 20141002
  Serious: Yes (Other)
  Sender: FDA-Public Use
  Company Number: PHHY2012JP049980

PATIENT
  Age: 32 Year
  Sex: Male

DRUGS (10)
  1. FTY 720 [Suspect]
     Indication: MULTIPLE SCLEROSIS
     Dosage: 0.5 MG, QD
     Route: 048
     Dates: start: 20120217
  2. DEPAKENE-R [Concomitant]
     Dosage: 800 MG, UNK
     Route: 048
     Dates: end: 20130901
  3. DEPAKENE-R [Concomitant]
     Dosage: 600 MG, UNK
     Route: 048
     Dates: start: 20130902, end: 20130929
  4. DEPAKENE-R [Concomitant]
     Dosage: 400 MG, UNK
     Route: 048
     Dates: start: 20130930, end: 20131110
  5. DEPAKENE-R [Concomitant]
     Dosage: 600 MG, UNK
     Route: 048
     Dates: start: 20131111
  6. MUCOSTA [Concomitant]
     Dosage: 3 DF, QD
     Route: 048
  7. SILECE [Concomitant]
     Route: 048
  8. MOHRUS L [Concomitant]
     Route: 061
  9. INTEBAN [Concomitant]
     Route: 061
  10. ACUATIM [Concomitant]
     Route: 061
     Dates: start: 20110704

REACTIONS (1)
  - Sinus tachycardia [Not Recovered/Not Resolved]
